FAERS Safety Report 7684887-5 (Version None)
Quarter: 2011Q3

REPORT INFORMATION
  Report Type: 
  Country: None (occurrence: None)
  Receive Date: 20110816
  Receipt Date: 20110802
  Transmission Date: 20111222
  Serious: No
  Sender: FDA-Public Use
  Company Number: US-BAYER-2011-069536

PATIENT
  Age: 17 Year
  Sex: Female
  Weight: 73 kg

DRUGS (2)
  1. ALEVE (CAPLET) [Suspect]
     Dosage: DAILY DOSE 1760 MG
     Route: 048
     Dates: start: 20110801
  2. UNKNOWN [Concomitant]

REACTIONS (1)
  - PALPITATIONS [None]
